FAERS Safety Report 9290467 (Version 3)
Quarter: 2013Q2

REPORT INFORMATION
  Report Type: Report from Study
  Country: US (occurrence: US)
  Receive Date: 20130515
  Receipt Date: 20130617
  Transmission Date: 20140414
  Serious: No
  Sender: FDA-Public Use
  Company Number: US-VERTEX PHARMACEUTICALS INC-2013-006012

PATIENT
  Age: 60 Year
  Sex: Male

DRUGS (7)
  1. VX-950 (TELAPREVIR) [Suspect]
     Indication: HEPATITIS C
     Dosage: 1125 MG, BID
     Route: 048
     Dates: start: 20130503
  2. PEGASYS [Suspect]
     Indication: HEPATITIS C
     Dosage: 180 ?G, QW
     Route: 058
     Dates: start: 20130503
  3. RIBAVIRIN [Suspect]
     Indication: HEPATITIS C
     Dosage: 600 MG, BID
     Route: 048
     Dates: start: 20130503
  4. METFORMIN [Concomitant]
  5. GLIPIZIDE [Concomitant]
  6. ASA [Concomitant]
  7. VIAGRA [Concomitant]
     Dosage: UNK, PRN

REACTIONS (4)
  - Influenza like illness [Recovered/Resolved]
  - Decreased appetite [Recovered/Resolved]
  - Fatigue [Not Recovered/Not Resolved]
  - Anaemia [Not Recovered/Not Resolved]
